FAERS Safety Report 18995671 (Version 1)
Quarter: 2021Q1

REPORT INFORMATION
  Report Type: Report from Study
  Country: None (occurrence: IT)
  Receive Date: 20210310
  Receipt Date: 20210310
  Transmission Date: 20210420
  Serious: Yes (Death, Hospitalization)
  Sender: FDA-Public Use
  Company Number: IT-ABBVIE-21K-083-3743170-00

PATIENT
  Age: 82 Year
  Sex: Male

DRUGS (2)
  1. DUODOPA [Suspect]
     Active Substance: CARBIDOPA\LEVODOPA
  2. DUODOPA [Suspect]
     Active Substance: CARBIDOPA\LEVODOPA
     Indication: PARKINSON^S DISEASE
     Dosage: DAILY DOSE: 506 MG; PUMP SETTING: MD: 2,5+3 CR: 1,8 (11H), ED:1,5
     Route: 050
     Dates: start: 20200708, end: 20210306

REACTIONS (3)
  - Pneumonia aspiration [Fatal]
  - Coma [Fatal]
  - General physical health deterioration [Fatal]

NARRATIVE: CASE EVENT DATE: 202101
